FAERS Safety Report 18767111 (Version 1)
Quarter: 2021Q1

REPORT INFORMATION
  Report Type: Spontaneous
  Country: US (occurrence: US)
  Receive Date: 20210121
  Receipt Date: 20210121
  Transmission Date: 20210419
  Serious: Yes (Death)
  Sender: FDA-Public Use
  Company Number: US-NAPO PHARMACEUTICALS-2020US009022

PATIENT
  Sex: Female

DRUGS (1)
  1. MYTESI [Suspect]
     Active Substance: CROFELEMER
     Indication: DIARRHOEA
     Dosage: 125 MG, BID
     Route: 048

REACTIONS (1)
  - Death [Fatal]
